FAERS Safety Report 9104562 (Version 2)
Quarter: 2013Q1

REPORT INFORMATION
  Report Type: Spontaneous
  Country: GB (occurrence: GB)
  Receive Date: 20130220
  Receipt Date: 20130301
  Transmission Date: 20140127
  Serious: Yes (Hospitalization, Disabling)
  Sender: FDA-Public Use
  Company Number: GB-JNJFOC-20130202595

PATIENT
  Age: 27 Year
  Sex: Female
  Weight: 68 kg

DRUGS (4)
  1. XEPLION [Suspect]
     Indication: PSYCHOTIC DISORDER
     Route: 030
     Dates: start: 20120419, end: 20120830
  2. OLANZAPINE [Concomitant]
     Route: 065
  3. RISPERIDONE [Concomitant]
     Route: 065
  4. VENLAFAXINE [Concomitant]
     Route: 065

REACTIONS (3)
  - Emotional distress [Not Recovered/Not Resolved]
  - Psychotic disorder [Not Recovered/Not Resolved]
  - Agitation [Not Recovered/Not Resolved]
